FAERS Safety Report 6424956-0 (Version None)
Quarter: 2009Q4

REPORT INFORMATION
  Report Type: 
  Country: None (occurrence: None)
  Receive Date: 20091103
  Receipt Date: 20091022
  Transmission Date: 20100525
  Serious: Yes (Other)
  Sender: FDA-Public Use
  Company Number: DE-ELI_LILLY_AND_COMPANY-DE200910005728

PATIENT
  Sex: Female

DRUGS (7)
  1. BYETTA [Suspect]
     Indication: TYPE 1 DIABETES MELLITUS
     Dosage: 5 UG, UNK
  2. BYETTA [Suspect]
     Dosage: 10 UG, UNK
  3. BYETTA [Suspect]
     Dosage: 5 UG, UNKNOWN
     Route: 065
  4. METFORMIN HCL [Concomitant]
     Dosage: 1 D/F, EACH EVENING
     Route: 065
  5. LEVOTHYROXINE SODIUM [Concomitant]
     Dosage: UNK, UNKNOWN
     Route: 065
  6. BISOPROLOL [Concomitant]
     Dosage: UNK, UNKNOWN
     Route: 065
  7. DELIX PLUS [Concomitant]
     Dosage: UNK, UNKNOWN
     Route: 065

REACTIONS (7)
  - DRUG INTOLERANCE [None]
  - HEPATIC ENZYME INCREASED [None]
  - LACTOSE INTOLERANCE [None]
  - OEDEMA PERIPHERAL [None]
  - SYNCOPE [None]
  - URTICARIA [None]
  - WEIGHT DECREASED [None]
